FAERS Safety Report 6240914-3 (Version None)
Quarter: 2009Q2

REPORT INFORMATION
  Report Type: 
  Country: None (occurrence: None)
  Receive Date: 20090623
  Receipt Date: 20090608
  Transmission Date: 20091009
  Serious: Yes (Other)
  Sender: FDA-Public Use
  Company Number: US-AVENTIS-200915062US

PATIENT
  Sex: Female
  Weight: 227.3 kg

DRUGS (7)
  1. LANTUS [Suspect]
     Route: 058
  2. OPTICLIK (INSULIN INJECTION PEN) [Suspect]
  3. FUROSEMIDE [Concomitant]
  4. SIMVASTATIN [Concomitant]
  5. LISINOPRIL [Concomitant]
  6. ALLOPURINOL [Concomitant]
  7. GLYBURIDE [Concomitant]
     Dosage: DOSE: 10 MG IN AM AND 5 MG IN THE EVENING

REACTIONS (1)
  - CATARACT [None]
